FAERS Safety Report 15311506 (Version 2)
Quarter: 2018Q3

REPORT INFORMATION
  Report Type: Spontaneous
  Country: TW (occurrence: TW)
  Receive Date: 20180823
  Receipt Date: 20180920
  Transmission Date: 20181010
  Serious: Yes (Death, Hospitalization)
  Sender: FDA-Public Use
  Company Number: TW-PFIZER INC-2017555274

PATIENT
  Age: 82 Year
  Sex: Female

DRUGS (1)
  1. SUTENT [Suspect]
     Active Substance: SUNITINIB MALATE
     Indication: RENAL CELL CARCINOMA
     Dosage: 37.5 MG, CYCLIC (QD, 2 WEEKS ON AND 1 WEEK OFF)
     Route: 048
     Dates: start: 20171207

REACTIONS (11)
  - Gingival swelling [Recovered/Resolved]
  - Palmar-plantar erythrodysaesthesia syndrome [Not Recovered/Not Resolved]
  - Diarrhoea [Unknown]
  - Pharyngeal oedema [Unknown]
  - Constipation [Unknown]
  - Intestinal obstruction [Unknown]
  - Mouth ulceration [Recovered/Resolved]
  - Blood pressure increased [Not Recovered/Not Resolved]
  - Proctalgia [Unknown]
  - Sepsis [Fatal]
  - Cough [Unknown]

NARRATIVE: CASE EVENT DATE: 201712
